FAERS Safety Report 4625374-8 (Version None)
Quarter: 2005Q1

REPORT INFORMATION
  Report Type: 
  Country: None (occurrence: None)
  Receive Date: 20050325
  Receipt Date: 20050127
  Transmission Date: 20050727
  Serious: No
  Sender: FDA-Public Use
  Company Number: USA050189337

PATIENT
  Age: 79 Year
  Sex: Female

DRUGS (9)
  1. FORTEO [Suspect]
     Indication: OSTEOPOROSIS
     Dates: start: 20041001
  2. FOSAMAX [Concomitant]
  3. CALCIUM GLUCONATE [Concomitant]
  4. IPRATROPIUM BROMIDE [Concomitant]
  5. FLOVENT [Concomitant]
  6. SEREVENT [Concomitant]
  7. AZOPT (BRINZOLADMIDE) [Concomitant]
  8. XALATAN [Concomitant]
  9. OXYGEN [Concomitant]

REACTIONS (3)
  - ASTHENIA [None]
  - MACULAR DEGENERATION [None]
  - MUSCULAR WEAKNESS [None]
